FAERS Safety Report 14191000 (Version 2)
Quarter: 2017Q4

REPORT INFORMATION
  Report Type: Spontaneous
  Country: ES (occurrence: ES)
  Receive Date: 20171115
  Receipt Date: 20171130
  Transmission Date: 20180321
  Serious: Yes (Other)
  Sender: FDA-Public Use
  Company Number: ES-PFIZER INC-2017487010

PATIENT
  Sex: Female

DRUGS (2)
  1. AMOXICILINA + ACIDO CLAVULANICO [Interacting]
     Active Substance: AMOXICILLIN\CLAVULANIC ACID
  2. DUAVIVE [Suspect]
     Active Substance: BAZEDOXIFENE ACETATE\ESTROGENS, CONJUGATED
     Route: 048

REACTIONS (2)
  - Vaginal haemorrhage [Unknown]
  - Drug interaction [Unknown]
